FAERS Safety Report 9698207 (Version 2)
Quarter: 2013Q4

REPORT INFORMATION
  Report Type: Spontaneous
  Country: UA (occurrence: UA)
  Receive Date: 20131120
  Receipt Date: 20131205
  Transmission Date: 20140711
  Serious: Yes (Death)
  Sender: FDA-Public Use
  Company Number: UA-SA-2013SA116449

PATIENT
  Age: 62 Year
  Sex: Female

DRUGS (1)
  1. CLEXANE [Suspect]
     Indication: THROMBOSIS PROPHYLAXIS
     Route: 058
     Dates: start: 20131022, end: 20131024

REACTIONS (3)
  - Pulmonary embolism [Fatal]
  - Drug ineffective [Fatal]
  - Cardiopulmonary failure [Fatal]
